FAERS Safety Report 5482183-8 (Version None)
Quarter: 2007Q4

REPORT INFORMATION
  Report Type: 
  Country: None (occurrence: None)
  Receive Date: 20071005
  Receipt Date: 20070926
  Transmission Date: 20080405
  Serious: Yes (Hospitalization)
  Sender: FDA-Public Use
  Company Number: PRA2-2007-00003

PATIENT
  Age: 67 Year
  Sex: Male
  Weight: 85.5 kg

DRUGS (29)
  1. 405 (LANTHANUM CARBONATE) (LANTHANUM CARBONATE) CHEWABLE TABLET [Suspect]
     Indication: HYPERPHOSPHATAEMIA
     Dosage: 750 MG, 3X/DAY: TID, ORAL
     Route: 048
     Dates: start: 20070827, end: 20070903
  2. LACTULOSE [Concomitant]
  3. ACETYLSALICYLIC ACID SRT [Concomitant]
  4. CLOPIDOGREL [Concomitant]
  5. FLUVASTATIN [Concomitant]
  6. OMEPRAZOLE [Concomitant]
  7. ESOMEPRAZOLE (ESOMEPRAZOLE) [Concomitant]
  8. ZOPICLON 7.5 (ZOPICLONE) [Concomitant]
  9. L-CARNITHINE (LEVOCARNITINE) [Concomitant]
  10. TILIDIN COMP (NALOXONE HYDROCHLORIDE, TILIDINE HYDROCHLORIDE) [Concomitant]
  11. PENTAERYTHRITOL TETRANITRATE (PENTAERITHRITYL TETRANITRATE) [Concomitant]
  12. ERYTHROPOIETIN (ERYTHROPOIETIN) [Concomitant]
  13. MOXONIDIN (MOXONIDINE) [Concomitant]
  14. FERRLECIT (FERRIC SODIUM GLUCONATE  COMPLEX) [Concomitant]
  15. XIPAMID (XIPAMIDE) [Concomitant]
  16. BISOPROLOL FUMARATE [Concomitant]
  17. NATRIUMHYDROCARBONATE (SODIUM BICARBONATE) [Concomitant]
  18. DIHYDRALAZIN (DIHYDRALAZINE SULFATE) [Concomitant]
  19. TELMISARTAN (TELMISARTAN) [Concomitant]
  20. TORASEMID (TORASEMIDE) [Concomitant]
  21. INSULIN HUMAN (INSULIN HUMAN) [Concomitant]
  22. LEVEMIR (INSULIN DETEMIR) [Concomitant]
  23. GABAPENTIN [Concomitant]
  24. TAMSULOSIN HCL [Concomitant]
  25. VIANI (FLUTICASONE PROPIONATE, SALMETEROL XINAFOATE) [Concomitant]
  26. SALBUTAMOL (SALBUTAMOL) [Concomitant]
  27. PENTAERYTHIRITOL TETRANITRATE TAB [Concomitant]
  28. UROXATRAL [Concomitant]
  29. MOVICOL (MACROGOL, POTASSIUM CHLORIDE, SODIUM BICARBONATE, SODIUM CHLO [Concomitant]

REACTIONS (17)
  - ABDOMINAL PAIN UPPER [None]
  - BRADYCARDIA [None]
  - BUNDLE BRANCH BLOCK LEFT [None]
  - CHEST PAIN [None]
  - CONDITION AGGRAVATED [None]
  - DYSPEPSIA [None]
  - FATIGUE [None]
  - GALLBLADDER DISORDER [None]
  - GASTRITIS [None]
  - GENERAL PHYSICAL HEALTH DETERIORATION [None]
  - MALAISE [None]
  - MUSCLE SPASMS [None]
  - NAUSEA [None]
  - QRS AXIS ABNORMAL [None]
  - REGURGITATION [None]
  - ULTRASOUND ABDOMEN ABNORMAL [None]
  - VOMITING [None]
